FAERS Safety Report 7901795-2 (Version None)
Quarter: 2011Q4

REPORT INFORMATION
  Report Type: 
  Country: None (occurrence: None)
  Receive Date: 20111108
  Receipt Date: 20111029
  Transmission Date: 20120403
  Serious: Yes (Other)
  Sender: FDA-Public Use
  Company Number: PHHY2011CA96806

PATIENT

DRUGS (3)
  1. DIURETICS [Concomitant]
  2. ALISKIREN [Suspect]
  3. ANGIOTENSIN II ANTAGONISTS [Concomitant]

REACTIONS (2)
  - BLOOD PRESSURE INCREASED [None]
  - TRANSIENT ISCHAEMIC ATTACK [None]
